FAERS Safety Report 6381272-3 (Version None)
Quarter: 2009Q3

REPORT INFORMATION
  Report Type: 
  Country: None (occurrence: None)
  Receive Date: 20090929
  Receipt Date: 20090917
  Transmission Date: 20100115
  Serious: Yes (Other)
  Sender: FDA-Public Use
  Company Number: US-PFIZER INC-2009271941

PATIENT
  Sex: Female
  Weight: 58.1 kg

DRUGS (4)
  1. XALATAN [Suspect]
     Indication: GLAUCOMA
     Dosage: 1 GTT, 1X/DAY
     Route: 047
  2. VITAMINS [Concomitant]
     Dosage: UNK
  3. ALPHAGAN [Concomitant]
     Indication: GLAUCOMA
  4. COSOPT [Concomitant]
     Indication: GLAUCOMA

REACTIONS (5)
  - CONFUSIONAL STATE [None]
  - INTRAOCULAR PRESSURE INCREASED [None]
  - MEMORY IMPAIRMENT [None]
  - NERVE INJURY [None]
  - VISUAL ACUITY REDUCED [None]
